FAERS Safety Report 8955422 (Version 2)
Quarter: 2013Q1

REPORT INFORMATION
  Report Type: Report from Study
  Country: NL (occurrence: NL)
  Receive Date: 20121207
  Receipt Date: 20130110
  Transmission Date: 20140127
  Serious: Yes (Disabling, Other)
  Sender: FDA-Public Use
  Company Number: NL-ROCHE-1164650

PATIENT
  Age: 65 Year
  Sex: Female
  Weight: 60 kg

DRUGS (4)
  1. BEVACIZUMAB [Suspect]
     Indication: BRAIN NEOPLASM MALIGNANT
     Dosage: RECENT DOSE ON 12/NOV/2012
     Route: 042
     Dates: start: 20121015
  2. NIFEDIPINE [Concomitant]
     Indication: HYPERTENSION
     Route: 048
     Dates: start: 20121010
  3. VALPROATE [Concomitant]
     Indication: CONVULSION
     Route: 048
     Dates: start: 2012
  4. DEXAMETHASON [Concomitant]
     Indication: SOMNOLENCE
     Route: 042
     Dates: start: 20121013

REACTIONS (2)
  - Hemiparesis [Not Recovered/Not Resolved]
  - Transient ischaemic attack [Recovered/Resolved]
